FAERS Safety Report 9671120 (Version 1)
Quarter: 2013Q4

REPORT INFORMATION
  Report Type: Spontaneous
  Country: US (occurrence: None)
  Receive Date: 20131105
  Receipt Date: 20131105
  Transmission Date: 20140711
  Serious: Yes (Hospitalization)
  Sender: FDA-Public Use
  Company Number: None

PATIENT
  Age: 55 Year
  Sex: Male

DRUGS (8)
  1. KALETRA 200/50 [Suspect]
     Indication: HIV INFECTION
     Dates: start: 20120921
  2. IAMIVUDINE/ZIDOVUDINE [Concomitant]
  3. CHLORDIAZEPOXIDE-CLIDI [Concomitant]
  4. TRICOR [Concomitant]
  5. LANTUS [Concomitant]
  6. GLLIMEPIRIDE [Concomitant]
  7. CHOLESTYRAMINE [Concomitant]
  8. MICARDIS-DATES [Concomitant]

REACTIONS (1)
  - Pulmonary embolism [None]
